FAERS Safety Report 15099500 (Version 2)
Quarter: 2018Q3

REPORT INFORMATION
  Report Type: Report from Study
  Country: BR (occurrence: BR)
  Receive Date: 20180702
  Receipt Date: 20180802
  Transmission Date: 20181010
  Serious: Yes (Hospitalization)
  Sender: FDA-Public Use
  Company Number: BR-B.I. PHARMACEUTICALS,INC./RIDGEFIELD-2018-BI-033378

PATIENT
  Age: 74 Year
  Sex: Male
  Weight: 60 kg

DRUGS (4)
  1. OFEV [Suspect]
     Active Substance: NINTEDANIB
     Route: 048
     Dates: start: 201803
  2. OFEV [Suspect]
     Active Substance: NINTEDANIB
     Indication: IDIOPATHIC PULMONARY FIBROSIS
     Route: 048
     Dates: start: 201803
  3. PREDNISONA [Suspect]
     Active Substance: PREDNISONE
     Indication: BRONCHITIS
     Route: 048
     Dates: start: 2016, end: 20180625
  4. INSULIN [Concomitant]
     Active Substance: INSULIN NOS
     Indication: DIABETES MELLITUS
     Dosage: UNIT DOSE: 30 IU/ML (MORNING) PLUS 15 IU/ML (AFTERNOON)
     Route: 058
     Dates: start: 2016

REACTIONS (4)
  - Blood glucose decreased [Not Recovered/Not Resolved]
  - Pneumonia [Recovered/Resolved]
  - Liver disorder [Not Recovered/Not Resolved]
  - Weight decreased [Not Recovered/Not Resolved]

NARRATIVE: CASE EVENT DATE: 20180706
